FAERS Safety Report 8484272-2 (Version None)
Quarter: 2012Q3

REPORT INFORMATION
  Report Type: 
  Country: None (occurrence: None)
  Receive Date: 20120703
  Receipt Date: 20120627
  Transmission Date: 20120928
  Serious: Yes (Death, Hospitalization)
  Sender: FDA-Public Use
  Company Number: GR-JNJFOC-20120509106

PATIENT
  Sex: Male

DRUGS (20)
  1. ARVEKAP [Concomitant]
     Route: 030
     Dates: start: 20091222
  2. ARVEKAP [Concomitant]
     Indication: PROSTATE CANCER
     Route: 030
     Dates: start: 20091222
  3. ZOLEDRONIC ACID [Concomitant]
     Indication: PROPHYLAXIS
     Route: 042
  4. PREDNISOLONE [Suspect]
     Route: 048
     Dates: start: 20100924, end: 20120504
  5. BUDESONIDE [Concomitant]
     Indication: CHRONIC OBSTRUCTIVE PULMONARY DISEASE
     Route: 055
     Dates: start: 19940101
  6. STALEVO 100 [Concomitant]
     Indication: EXTRAPYRAMIDAL DISORDER
     Route: 048
     Dates: start: 20101101
  7. ABIRATERONE ACETATE [Suspect]
     Indication: PROSTATE CANCER METASTATIC
     Route: 048
     Dates: start: 20091222, end: 20100923
  8. PREDNISOLONE [Suspect]
     Indication: PROSTATE CANCER METASTATIC
     Route: 048
     Dates: start: 20091222, end: 20100923
  9. ARVEKAP [Concomitant]
     Indication: HORMONE THERAPY
     Route: 030
     Dates: start: 20060929
  10. DEPON [Concomitant]
     Indication: CANCER PAIN
     Route: 048
  11. TIOTROPIUM [Concomitant]
     Indication: CHRONIC OBSTRUCTIVE PULMONARY DISEASE
     Route: 055
     Dates: start: 19940101
  12. LANSOPRAZOLE [Concomitant]
     Indication: GASTROINTESTINAL DISORDER THERAPY
     Dosage: AS REQUIRED
     Route: 048
     Dates: start: 20080101
  13. ABIRATERONE ACETATE [Suspect]
     Route: 048
     Dates: start: 20100930, end: 20120505
  14. ARVEKAP [Concomitant]
     Route: 030
     Dates: start: 20060929
  15. DEPON [Concomitant]
     Indication: BONE PAIN
     Route: 048
     Dates: start: 20101001
  16. ABSTRAL [Concomitant]
     Indication: CANCER PAIN
     Route: 048
     Dates: start: 20120411, end: 20120531
  17. LAPRAZOL [Concomitant]
     Indication: GASTROINTESTINAL DISORDER THERAPY
     Route: 048
     Dates: start: 20101001
  18. LONARID-N [Concomitant]
     Indication: CANCER PAIN
     Route: 048
     Dates: start: 20120313
  19. DURAGESIC-100 [Concomitant]
     Indication: CANCER PAIN
     Route: 048
     Dates: start: 20120411, end: 20120531
  20. LONALGAL [Concomitant]
     Indication: CANCER PAIN
     Route: 048
     Dates: start: 20111025

REACTIONS (1)
  - SOFT TISSUE INFECTION [None]
